FAERS Safety Report 4789469-0 (Version None)
Quarter: 2005Q4

REPORT INFORMATION
  Report Type: 
  Country: None (occurrence: None)
  Receive Date: 20051004
  Receipt Date: 20051004
  Transmission Date: 20060501
  Serious: No
  Sender: FDA-Public Use
  Company Number: None

PATIENT
  Age: 66 Year
  Sex: Male
  Weight: 74 kg

DRUGS (4)
  1. NESIRITIDE [Suspect]
     Indication: CARDIAC FAILURE CONGESTIVE
     Dosage: 0.01 MCG/KG/MIN IV
     Route: 042
     Dates: start: 20050412
  2. LASIX [Concomitant]
  3. METOLAZONE [Concomitant]
  4. METOPROLOL [Concomitant]

REACTIONS (1)
  - BLOOD PRESSURE DECREASED [None]
